FAERS Safety Report 4431895-3 (Version None)
Quarter: 2004Q3

REPORT INFORMATION
  Report Type: 
  Country: None (occurrence: None)
  Receive Date: 20040819
  Receipt Date: 20040810
  Transmission Date: 20050211
  Serious: No
  Sender: FDA-Public Use
  Company Number: 2004UW16913

PATIENT
  Age: 31 Year
  Sex: Female

DRUGS (3)
  1. SEROQUEL [Suspect]
     Dosage: 900 MG HS; PO
     Route: 048
  2. XANAX [Suspect]
     Dosage: NI
  3. ZOLOFT [Suspect]
     Dosage: NI

REACTIONS (2)
  - ABORTION SPONTANEOUS [None]
  - DRUG EXPOSURE DURING PREGNANCY [None]
